FAERS Safety Report 5309281-3 (Version None)
Quarter: 2007Q2

REPORT INFORMATION
  Report Type: 
  Country: None (occurrence: None)
  Receive Date: 20070427
  Receipt Date: 20070419
  Transmission Date: 20071010
  Serious: Yes (Life-Threatening)
  Sender: FDA-Public Use
  Company Number: JP-ROCHE-489772

PATIENT
  Age: 11 Year
  Sex: Male
  Weight: 30 kg

DRUGS (6)
  1. TAMIFLU [Suspect]
     Indication: INFLUENZA
     Dosage: FORM: DRY SYRUP.
     Route: 048
     Dates: start: 20070309
  2. ASVERIN [Concomitant]
     Route: 048
     Dates: start: 20070309, end: 20070311
  3. MUCODYNE [Concomitant]
     Route: 048
     Dates: start: 20070309, end: 20070311
  4. PERIACTIN [Concomitant]
     Route: 048
     Dates: start: 20070306, end: 20070311
  5. GLUCOSE [Concomitant]
  6. 1 CONCOMITANT DRUG [Concomitant]
     Dosage: GENERIC REPORTED AS DIMETHYLAMINOSTHYL RESERPILINATE DIHYDROCHLORIDE. TRADE NAME PULLSMALIN R.
     Route: 048
     Dates: start: 20070309, end: 20070311

REACTIONS (1)
  - DELIRIUM [None]
